FAERS Safety Report 17861316 (Version 1)
Quarter: 2020Q2

REPORT INFORMATION
  Report Type: Spontaneous
  Country: US (occurrence: US)
  Receive Date: 20200604
  Receipt Date: 20200604
  Transmission Date: 20200714
  Serious: No
  Sender: FDA-Public Use
  Company Number: US-TARO-2020TAR00051

PATIENT

DRUGS (1)
  1. AMMONIUM LACTATE CREAM (BASE) 12% [Suspect]
     Active Substance: AMMONIUM LACTATE
     Indication: DRY SKIN
     Dosage: UNK, AS NEEDED
     Route: 061

REACTIONS (2)
  - Product residue present [Not Recovered/Not Resolved]
  - Application site dryness [Not Recovered/Not Resolved]
